FAERS Safety Report 13123874 (Version 11)
Quarter: 2019Q2

REPORT INFORMATION
  Report Type: Spontaneous
  Country: CA (occurrence: CA)
  Receive Date: 20170118
  Receipt Date: 20190520
  Transmission Date: 20190711
  Serious: Yes (Life-Threatening, Other)
  Sender: FDA-Public Use
  Company Number: CA-ROCHE-1880436

PATIENT
  Age: 50 Year
  Sex: Female

DRUGS (19)
  1. XOLAIR [Suspect]
     Active Substance: OMALIZUMAB
     Route: 058
     Dates: start: 20160831
  2. XOLAIR [Suspect]
     Active Substance: OMALIZUMAB
     Route: 058
     Dates: start: 20170323
  3. XOLAIR [Suspect]
     Active Substance: OMALIZUMAB
     Route: 058
     Dates: start: 20180719
  4. XOLAIR [Suspect]
     Active Substance: OMALIZUMAB
     Dosage: (75 MG IN BOTH ARMS)
     Route: 058
     Dates: start: 20170530
  5. AMOXICILLIN. [Suspect]
     Active Substance: AMOXICILLIN
     Indication: PRODUCT USED FOR UNKNOWN INDICATION
     Route: 065
  6. MOXIFLOXACIN. [Suspect]
     Active Substance: MOXIFLOXACIN
     Indication: PRODUCT USED FOR UNKNOWN INDICATION
     Route: 065
  7. PREDNISONE. [Suspect]
     Active Substance: PREDNISONE
     Indication: HYPERSENSITIVITY
     Route: 065
  8. XOLAIR [Suspect]
     Active Substance: OMALIZUMAB
     Route: 058
     Dates: start: 20160721
  9. XOLAIR [Suspect]
     Active Substance: OMALIZUMAB
     Route: 058
     Dates: start: 20160811
  10. XOLAIR [Suspect]
     Active Substance: OMALIZUMAB
     Route: 058
  11. XOLAIR [Suspect]
     Active Substance: OMALIZUMAB
     Route: 058
     Dates: start: 20161130
  12. XOLAIR [Suspect]
     Active Substance: OMALIZUMAB
     Route: 058
     Dates: start: 201807
  13. XOLAIR [Suspect]
     Active Substance: OMALIZUMAB
     Route: 058
     Dates: start: 20161109
  14. SPIRIVA [Suspect]
     Active Substance: TIOTROPIUM BROMIDE MONOHYDRATE
     Indication: PRODUCT USED FOR UNKNOWN INDICATION
     Route: 065
  15. XOLAIR [Suspect]
     Active Substance: OMALIZUMAB
     Route: 058
     Dates: start: 20160921
  16. XOLAIR [Suspect]
     Active Substance: OMALIZUMAB
     Route: 058
     Dates: start: 20180316
  17. EPIPEN [Suspect]
     Active Substance: EPINEPHRINE
     Indication: PRODUCT USED FOR UNKNOWN INDICATION
     Route: 065
  18. XOLAIR [Suspect]
     Active Substance: OMALIZUMAB
     Indication: ASTHMA
     Route: 058
     Dates: start: 20060607
  19. XOLAIR [Suspect]
     Active Substance: OMALIZUMAB
     Route: 058
     Dates: start: 20161221

REACTIONS (41)
  - Hypersensitivity [Recovering/Resolving]
  - Immunodeficiency [Recovering/Resolving]
  - Multiple chemical sensitivity [Unknown]
  - Drug hypersensitivity [Unknown]
  - Insomnia [Unknown]
  - Feeling abnormal [Recovering/Resolving]
  - Post-traumatic stress disorder [Unknown]
  - Larynx irritation [Unknown]
  - Nasal congestion [Unknown]
  - Forced vital capacity abnormal [Unknown]
  - Respiratory tract infection [Unknown]
  - Perfume sensitivity [Unknown]
  - Dysphagia [Unknown]
  - Muscle tightness [Unknown]
  - Vocal cord dysfunction [Unknown]
  - Somnolence [Unknown]
  - Ill-defined disorder [Unknown]
  - Mobility decreased [Unknown]
  - Anxiety [Unknown]
  - Asthma [Recovering/Resolving]
  - Drug ineffective [Unknown]
  - Hormone level abnormal [Recovering/Resolving]
  - Obstructive airways disorder [Not Recovered/Not Resolved]
  - Speech disorder [Not Recovered/Not Resolved]
  - Dyspnoea [Recovering/Resolving]
  - Drug intolerance [Unknown]
  - Injection site hypersensitivity [Unknown]
  - Smoke sensitivity [Unknown]
  - Tremor [Unknown]
  - Anaphylactic reaction [Unknown]
  - Blood pressure systolic increased [Unknown]
  - Caffeine allergy [Unknown]
  - Depression [Unknown]
  - Chest discomfort [Recovered/Resolved]
  - Malaise [Unknown]
  - Dust allergy [Recovering/Resolving]
  - Chronic sinusitis [Not Recovered/Not Resolved]
  - Throat tightness [Recovered/Resolved]
  - Dysphonia [Recovering/Resolving]
  - Pulmonary oedema [Unknown]
  - Choking [Unknown]

NARRATIVE: CASE EVENT DATE: 2016
